FAERS Safety Report 13018486 (Version 2)
Quarter: 2016Q4

REPORT INFORMATION
  Report Type: Report from Study
  Country: None (occurrence: US)
  Receive Date: 20161212
  Receipt Date: 20161213
  Transmission Date: 20170207
  Serious: Yes (Other)
  Sender: FDA-Public Use
  Company Number: US-ABBVIE-16K-163-1803634-00

PATIENT
  Sex: Female

DRUGS (3)
  1. HUMIRA [Suspect]
     Active Substance: ADALIMUMAB
     Indication: RHEUMATOID ARTHRITIS
     Route: 058
     Dates: start: 2012, end: 2014
  2. HUMIRA [Suspect]
     Active Substance: ADALIMUMAB
     Route: 058
     Dates: start: 2016
  3. HUMIRA [Suspect]
     Active Substance: ADALIMUMAB
     Route: 058
     Dates: start: 201605, end: 2016

REACTIONS (10)
  - Joint swelling [Unknown]
  - Injection site pain [Unknown]
  - Anxiety [Unknown]
  - Arthralgia [Unknown]
  - Cerebrovascular accident [Unknown]
  - Blindness transient [Recovered/Resolved]
  - Musculoskeletal stiffness [Unknown]
  - Joint stiffness [Unknown]
  - Gait disturbance [Unknown]
  - Peripheral swelling [Unknown]

NARRATIVE: CASE EVENT DATE: 2016
